FAERS Safety Report 14169354 (Version 1)
Quarter: 2017Q4

REPORT INFORMATION
  Report Type: Spontaneous
  Country: KG (occurrence: KG)
  Receive Date: 20171107
  Receipt Date: 20171107
  Transmission Date: 20180321
  Serious: Yes (Other)
  Sender: FDA-Public Use
  Company Number: KG-ELI_LILLY_AND_COMPANY-KG201711000363

PATIENT
  Age: 65 Year
  Sex: Male

DRUGS (2)
  1. HUMULIN N [Suspect]
     Active Substance: INSULIN HUMAN
     Indication: TYPE 2 DIABETES MELLITUS
     Dosage: 14 U, BID
     Route: 058
     Dates: start: 20170605
  2. HUMULIN N [Suspect]
     Active Substance: INSULIN HUMAN
     Indication: NEPHROPATHY

REACTIONS (2)
  - Loss of consciousness [Unknown]
  - Vision blurred [Unknown]

NARRATIVE: CASE EVENT DATE: 20170606
